FAERS Safety Report 7376543-8 (Version None)
Quarter: 2011Q1

REPORT INFORMATION
  Report Type: 
  Country: None (occurrence: None)
  Receive Date: 20110317
  Receipt Date: 20110314
  Transmission Date: 20110831
  Serious: Yes (Other)
  Sender: FDA-Public Use
  Company Number: 2011-00100

PATIENT
  Age: 48 Year
  Sex: Female
  Weight: 42.6381 kg

DRUGS (5)
  1. CARVEDILOL [Concomitant]
  2. IMURAN [Concomitant]
  3. ZICAM COLD REMEDY LIQUI-LOZ [Suspect]
     Indication: NASOPHARYNGITIS
     Dosage: 2 DOSES
     Dates: start: 20110304, end: 20110304
  4. DIOVAN [Concomitant]
  5. PREDNISONE [Concomitant]

REACTIONS (4)
  - ABDOMINAL PAIN UPPER [None]
  - HAEMATEMESIS [None]
  - EPISTAXIS [None]
  - EYE HAEMORRHAGE [None]
